FAERS Safety Report 8432998-9 (Version None)
Quarter: 2012Q2

REPORT INFORMATION
  Report Type: 
  Country: None (occurrence: None)
  Receive Date: 20120613
  Receipt Date: 20120607
  Transmission Date: 20120825
  Serious: Yes (Death)
  Sender: FDA-Public Use
  Company Number: US-ROCHE-1076200

PATIENT

DRUGS (4)
  1. AVASTIN [Suspect]
     Indication: PRODUCT USED FOR UNKNOWN INDICATION
  2. OXALIPLATIN [Concomitant]
  3. EVEROLIMUS [Concomitant]
  4. CAPECITABINE [Concomitant]

REACTIONS (2)
  - DEATH [None]
  - PRODUCT COUNTERFEIT [None]
